FAERS Safety Report 8805416 (Version 1)
Quarter: 2012Q4

REPORT INFORMATION
  Report Type: 
  Country: HN (occurrence: HN)
  Receive Date: 20120924
  Receipt Date: 20120924
  Transmission Date: 20130627
  Serious: Yes (Death, Other)
  Sender: FDA-Public Use
  Company Number: PHHO2004HN11325

PATIENT
  Age: 33 Year
  Sex: Male

DRUGS (2)
  1. GLIVEC [Suspect]
     Indication: CHRONIC MYELOID LEUKAEMIA
     Dates: start: 20040515
  2. GLIVEC [Suspect]
     Dosage: 400 mg, BID
     Route: 048
     Dates: start: 20040517, end: 20040625

REACTIONS (5)
  - Sepsis [Fatal]
  - Pneumonia [Unknown]
  - Cough [Unknown]
  - Pyrexia [Unknown]
  - Dyspnoea [Unknown]
